FAERS Safety Report 7686655-7 (Version None)
Quarter: 2011Q3

REPORT INFORMATION
  Report Type: 
  Country: None (occurrence: None)
  Receive Date: 20110811
  Receipt Date: 20110802
  Transmission Date: 20111222
  Serious: Yes (Death)
  Sender: FDA-Public Use
  Company Number: 2010EU003402

PATIENT
  Age: 2 Year
  Sex: Male

DRUGS (2)
  1. PREDNISOLONE [Suspect]
     Dosage: 5 MG, UID/QD
  2. TACROLIMUS [Suspect]
     Indication: IMMUNOSUPPRESSANT DRUG THERAPY
     Dosage: 0.15 MG/KG, UID/QD

REACTIONS (10)
  - CARDIAC MURMUR [None]
  - QRS AXIS ABNORMAL [None]
  - TACHYCARDIA [None]
  - IMMUNOSUPPRESSANT DRUG LEVEL INCREASED [None]
  - NO THERAPEUTIC RESPONSE [None]
  - HYPERTENSION [None]
  - AORTIC VALVE STENOSIS [None]
  - EPSTEIN-BARR VIRUS ASSOCIATED LYMPHOPROLIFERATIVE DISORDER [None]
  - HYPERTROPHIC CARDIOMYOPATHY [None]
  - CARDIOTOXICITY [None]
